FAERS Safety Report 25572309 (Version 2)
Quarter: 2025Q3

REPORT INFORMATION
  Report Type: Spontaneous
  Country: US (occurrence: US)
  Receive Date: 20250717
  Receipt Date: 20250827
  Transmission Date: 20251021
  Serious: Yes (Hospitalization, Other)
  Sender: HIKMA
  Company Number: US-HIKMA PHARMACEUTICALS USA INC.-US-H14001-25-08410

PATIENT
  Age: 71 Year
  Sex: Female
  Weight: 51.8 kg

DRUGS (14)
  1. BLINATUMOMAB [Suspect]
     Active Substance: BLINATUMOMAB
     Indication: B-cell type acute leukaemia
     Route: 065
  2. CYCLOPHOSPHAMIDE [Suspect]
     Active Substance: CYCLOPHOSPHAMIDE
     Indication: B-cell type acute leukaemia
     Route: 065
  3. CYTARABINE [Suspect]
     Active Substance: CYTARABINE
     Indication: B-cell type acute leukaemia
     Route: 065
  4. DEXAMETHASONE [Suspect]
     Active Substance: DEXAMETHASONE
     Indication: B-cell type acute leukaemia
     Route: 065
  5. INOTUZUMAB OZOGAMICIN [Suspect]
     Active Substance: INOTUZUMAB OZOGAMICIN
     Indication: B-cell type acute leukaemia
     Route: 065
  6. MERCAPTOPURINE [Suspect]
     Active Substance: MERCAPTOPURINE
     Indication: B-cell type acute leukaemia
     Route: 065
     Dates: start: 20250519, end: 20250527
  7. METHOTREXATE [Suspect]
     Active Substance: METHOTREXATE
     Indication: B-cell type acute leukaemia
     Route: 037
  8. METHOTREXATE [Suspect]
     Active Substance: METHOTREXATE
     Dosage: 10 MG/M2, WEEKLY
     Route: 048
  9. METHOTREXATE [Suspect]
     Active Substance: METHOTREXATE
     Indication: B-cell type acute leukaemia
     Route: 065
  10. METHYLPREDNISOLONE [Suspect]
     Active Substance: METHYLPREDNISOLONE
     Indication: B-cell type acute leukaemia
     Route: 065
  11. PREDNISONE [Suspect]
     Active Substance: PREDNISONE
     Indication: B-cell type acute leukaemia
     Route: 065
     Dates: start: 20250519, end: 20250523
  12. RITUXIMAB [Suspect]
     Active Substance: RITUXIMAB
     Indication: B-cell type acute leukaemia
     Route: 065
  13. VINCRISTINE SULFATE [Suspect]
     Active Substance: VINCRISTINE SULFATE
     Indication: B-cell type acute leukaemia
     Route: 065
     Dates: end: 20250519
  14. MESNA [Concomitant]
     Active Substance: MESNA
     Indication: B-cell type acute leukaemia
     Route: 065

REACTIONS (3)
  - Upper gastrointestinal haemorrhage [Recovered/Resolved]
  - Anaemia [Recovered/Resolved]
  - Haematemesis [Unknown]

NARRATIVE: CASE EVENT DATE: 20250527
